FAERS Safety Report 5573567-8 (Version None)
Quarter: 2007Q4

REPORT INFORMATION
  Report Type: 
  Country: None (occurrence: None)
  Receive Date: 20071226
  Receipt Date: 20071219
  Transmission Date: 20080405
  Serious: Yes (Hospitalization)
  Sender: FDA-Public Use
  Company Number: FR-WYE-G00802807

PATIENT
  Age: 36 Year
  Sex: Female

DRUGS (1)
  1. ADVIL LIQUI-GELS [Suspect]
     Indication: ARTHRALGIA
     Route: 048
     Dates: start: 20040101

REACTIONS (2)
  - MENINGITIS ASEPTIC [None]
  - RESPIRATORY ALKALOSIS [None]
